FAERS Safety Report 6703649-6 (Version None)
Quarter: 2010Q2

REPORT INFORMATION
  Report Type: 
  Country: None (occurrence: None)
  Receive Date: 20100430
  Receipt Date: 20100422
  Transmission Date: 20101027
  Serious: Yes (Hospitalization)
  Sender: FDA-Public Use
  Company Number: JP-SOLVAY-00309006894

PATIENT
  Age: 24140 Day
  Sex: Male
  Weight: 72 kg

DRUGS (10)
  1. MERISLON [Concomitant]
     Indication: VERTIGO
     Dosage: DAILY DOSE: 18 MILLIGRAM(S)
     Route: 048
     Dates: start: 20090901, end: 20090904
  2. GLUCOSE [Concomitant]
     Indication: DIABETES MELLITUS
     Dosage: DAILY DOSE:  UNKNOWN; AS USED: 10 GRAMS; FREQUENCY: AS NEEDED
     Route: 048
     Dates: start: 20091115
  3. NOVORAPID [Concomitant]
     Indication: DIABETES MELLITUS
     Dosage: DAILY DOSE: 16 INTERNATIONAL UNIT(S) AS USED: 4-6 IU, FREQUENCY: THREE TIMES A DAY
     Route: 058
     Dates: start: 20081105, end: 20090720
  4. NOVORAPID [Concomitant]
     Dosage: DAILY DOSE: 22 INTERNATIONAL UNIT(S); AS USED: 6-16 IU; FREQUENCY: TWO TO THREE TIMES A DAY
     Route: 058
     Dates: start: 20090721
  5. LANTUS [Concomitant]
     Indication: DIABETES MELLITUS
     Dosage: DAILY DOSE: 14 INTERNATIONAL UNIT(S); AS USED: 6-8 IU ; FREQUENCY: TWICE A DAY
     Route: 058
     Dates: start: 20081105, end: 20090323
  6. LANTUS [Concomitant]
     Dosage: DAILY DOSE: 18 INTERNATIONAL UNIT(S) , AS USED : 8-10 IU ; FREQUENCY: TWICE A DAY
     Route: 058
     Dates: start: 20090324
  7. TAKEPRON [Concomitant]
     Indication: GASTRIC ULCER
     Dosage: DAILY DOSE: 15 MILLIGRAM(S)
     Route: 048
     Dates: start: 20081105, end: 20091216
  8. URSO 250 [Concomitant]
     Indication: BILIARY TRACT DISORDER
     Dosage: DAILY DOSE: 300 MILLIGRAM(S)
     Route: 048
     Dates: start: 20081105, end: 20091216
  9. MAGNESIUM OXIDE [Concomitant]
     Indication: GASTRIC ULCER
     Dosage: DAILY DOSE: 2 GRAM(S)
     Route: 048
     Dates: start: 20081105, end: 20091216
  10. CREON [Suspect]
     Indication: PANCREATIC INSUFFICIENCY
     Dosage: DAILY DOSE: 6 TO 23 CAPSULES, AS USED: 2 TO 6 CAPSULES, FREQUENCY: 2 TO 6 TIMES A DAY
     Route: 048
     Dates: start: 20081105, end: 20091103

REACTIONS (1)
  - GASTRIC CANCER [None]
